FAERS Safety Report 19132844 (Version 1)
Quarter: 2021Q2

REPORT INFORMATION
  Report Type: Spontaneous
  Country: CA (occurrence: CA)
  Receive Date: 20210414
  Receipt Date: 20210414
  Transmission Date: 20210717
  Serious: Yes (Other)
  Sender: FDA-Public Use
  Company Number: CA-ROCHE-2807847

PATIENT
  Sex: Female

DRUGS (4)
  1. RITUXIMAB. [Suspect]
     Active Substance: RITUXIMAB
     Indication: PRODUCT USED FOR UNKNOWN INDICATION
     Route: 065
  2. SHINGRIX [Suspect]
     Active Substance: RECOMBINANT VARICELLA ZOSTER VIRUS (VZV) GLYCOPROTEIN E
     Dosage: SHINGRIX HERPES ZOSTER VACCINE (NON LIVE RECOMBINANT, AS01B ADJUVANTED): SUSPENION
     Route: 030
  3. SHINGRIX [Suspect]
     Active Substance: RECOMBINANT VARICELLA ZOSTER VIRUS (VZV) GLYCOPROTEIN E
     Indication: PRODUCT USED FOR UNKNOWN INDICATION
     Dosage: SHINGRIX HERPES ZOSTER VACCINE (NON LIVE RECOMBINANT, AS01B ADJUVANTED)
     Route: 065
  4. PREDNISONE. [Suspect]
     Active Substance: PREDNISONE
     Indication: PRODUCT USED FOR UNKNOWN INDICATION
     Dosage: FORM: UNSPECIFIED
     Route: 065

REACTIONS (7)
  - Injection site erythema [Not Recovered/Not Resolved]
  - Injection site pain [Not Recovered/Not Resolved]
  - Pain [Not Recovered/Not Resolved]
  - Vaccination failure [Unknown]
  - Injection site pruritus [Not Recovered/Not Resolved]
  - Herpes zoster [Not Recovered/Not Resolved]
  - Injection site swelling [Not Recovered/Not Resolved]
